FAERS Safety Report 18052430 (Version 2)
Quarter: 2021Q3

REPORT INFORMATION
  Report Type: Report from Study
  Country: JP (occurrence: JP)
  Receive Date: 20200722
  Receipt Date: 20210826
  Transmission Date: 20211014
  Serious: Yes (Death, Other)
  Sender: FDA-Public Use
  Company Number: JP-BRISTOL-MYERS SQUIBB COMPANY-BMS-2017-122635

PATIENT
  Age: 80 Year
  Sex: Female
  Weight: 45 kg

DRUGS (3)
  1. OPDIVO [Suspect]
     Active Substance: NIVOLUMAB
     Indication: METASTATIC MALIGNANT MELANOMA
     Dosage: 2 MILLIGRAM/KILOGRAM
     Route: 065
     Dates: start: 20161201, end: 20170112
  2. IPILIMUMAB [Suspect]
     Active Substance: IPILIMUMAB
     Indication: METASTATIC MALIGNANT MELANOMA
     Dosage: 3 MG/KG, UNK
     Route: 065
     Dates: start: 20160708, end: 20160708
  3. IPILIMUMAB [Suspect]
     Active Substance: IPILIMUMAB
     Dosage: 3 MG/KG, UNK
     Route: 065
     Dates: start: 20160728, end: 20160728

REACTIONS (1)
  - Death [Fatal]
